FAERS Safety Report 7197488-2 (Version None)
Quarter: 2010Q4

REPORT INFORMATION
  Report Type: 
  Country: None (occurrence: None)
  Receive Date: 20101213
  Receipt Date: 20101203
  Transmission Date: 20110411
  Serious: Yes (Other)
  Sender: FDA-Public Use
  Company Number: 2010PV000099

PATIENT
  Sex: Male

DRUGS (5)
  1. DEPOCYT [Suspect]
     Indication: BRAIN NEOPLASM MALIGNANT
     Dosage: 40 MG;QOW;INTH
     Route: 055
  2. TOPOTECAN [Concomitant]
  3. IMATINIB [Concomitant]
  4. TEMOZOLOMIDE [Concomitant]
  5. DEXAMETHASONE [Concomitant]

REACTIONS (5)
  - ATAXIA [None]
  - BRAIN NEOPLASM MALIGNANT [None]
  - DYSARTHRIA [None]
  - HEADACHE [None]
  - MALIGNANT NEOPLASM PROGRESSION [None]
